FAERS Safety Report 9157670 (Version 2)
Quarter: 2013Q2

REPORT INFORMATION
  Report Type: Spontaneous
  Country: GB (occurrence: None)
  Receive Date: 20130213
  Receipt Date: 20130509
  Transmission Date: 20140414
  Serious: Yes (Hospitalization, Other)
  Sender: FDA-Public Use
  Company Number: GER/UKI/13/0027867

PATIENT
  Age: 72 Year
  Sex: Female

DRUGS (2)
  1. OLANZAPINE (OLANZAPINE) [Suspect]
     Indication: HYPOMANIA
     Dates: start: 201212
  2. ABILIFY (ARIPIRAZOLE) [Suspect]
     Indication: BIPOLAR DISORDER
     Dosage: 5 MG, 1 IN 1 D, ORAL
     Route: 048
     Dates: start: 201212

REACTIONS (1)
  - Cerebrovascular accident [None]
